FAERS Safety Report 5235676-2 (Version None)
Quarter: 2007Q1

REPORT INFORMATION
  Report Type: 
  Country: None (occurrence: None)
  Receive Date: 20070212
  Receipt Date: 20070131
  Transmission Date: 20070707
  Serious: Yes (Hospitalization)
  Sender: FDA-Public Use
  Company Number: US-ROCHE-480918

PATIENT
  Age: 71 Year
  Sex: Female
  Weight: 68 kg

DRUGS (20)
  1. CAPECITABINE [Suspect]
     Indication: COLON CANCER STAGE III
     Dosage: FOR SIX DAYS. DOSE EQUIVALENT: 1500 MG/M2
     Route: 048
     Dates: start: 20061207
  2. OXALIPLATIN [Suspect]
     Indication: COLON CANCER STAGE III
     Dosage: DOSE EQUIVALENT: 100 MG/M2
     Route: 042
     Dates: start: 20061221
  3. FLUOROURACIL [Suspect]
     Indication: COLON CANCER STAGE III
     Dosage: DOSE EQUIVALENT: 400 MG/M2
     Route: 042
     Dates: start: 20061221
  4. LEUCOVORIN CALCIUM [Suspect]
     Indication: COLON CANCER STAGE III
     Dosage: DOSE EQUIVALENT: 20 MG/M2
     Route: 042
     Dates: start: 20061221
  5. RAMIPRIL [Concomitant]
     Route: 048
  6. ATORVASTATIN [Concomitant]
     Route: 048
  7. PIOGLITAZONE [Concomitant]
     Route: 048
  8. ASCORBIC ACID [Concomitant]
  9. FOLIC ACID [Concomitant]
  10. FERROUS SULFATE TAB [Concomitant]
  11. ALBUTEROL [Concomitant]
  12. IPRATROPIUM BROMIDE [Concomitant]
  13. CARVEDILOL [Concomitant]
     Route: 048
  14. CYANOCOBALAMIN [Concomitant]
  15. FUROSEMIDE [Concomitant]
  16. MEGESTROL ACETATE [Concomitant]
     Route: 048
  17. DOLASETRON [Concomitant]
  18. PROCHLORPERAZINE [Concomitant]
  19. METFORMIN [Concomitant]
     Route: 048
  20. ASPIRIN [Concomitant]
     Route: 048

REACTIONS (8)
  - DEHYDRATION [None]
  - DIARRHOEA [None]
  - ENTEROVESICAL FISTULA [None]
  - HYPOTENSION [None]
  - INTESTINAL OBSTRUCTION [None]
  - NAUSEA [None]
  - RENAL FAILURE ACUTE [None]
  - VOMITING [None]
